FAERS Safety Report 17572192 (Version 1)
Quarter: 2020Q1

REPORT INFORMATION
  Report Type: Spontaneous
  Country: US (occurrence: US)
  Receive Date: 20200317
  Receipt Date: 20200317
  Transmission Date: 20200409
  Serious: No
  Sender: FDA-Public Use
  Company Number: None

PATIENT
  Age: 57 Year
  Sex: Female

DRUGS (1)
  1. AFINITOR [Suspect]
     Active Substance: EVEROLIMUS
     Indication: BREAST CANCER
     Route: 048
     Dates: start: 201907

REACTIONS (6)
  - Diarrhoea [None]
  - Headache [None]
  - Back pain [None]
  - Nausea [None]
  - Scab [None]
  - Rhinorrhoea [None]

NARRATIVE: CASE EVENT DATE: 20200317
